FAERS Safety Report 7582214-5 (Version None)
Quarter: 2011Q2

REPORT INFORMATION
  Report Type: 
  Country: None (occurrence: None)
  Receive Date: 20110622
  Receipt Date: 20110615
  Transmission Date: 20111010
  Serious: Yes (Hospitalization)
  Sender: FDA-Public Use
  Company Number: 2011SP012409

PATIENT
  Age: 14 Year
  Sex: Male

DRUGS (4)
  1. ACETAMINOPHEN [Suspect]
     Indication: PRODUCT USED FOR UNKNOWN INDICATION
     Dosage: 1 DF, ONCE, PO
     Route: 048
     Dates: start: 20101206, end: 20101206
  2. CODEINE PHOSPHATE AND ACETAMINOPHEN [Suspect]
     Indication: PRODUCT USED FOR UNKNOWN INDICATION
     Dosage: 4 DF, ONCE, PO
     Route: 048
     Dates: start: 20101206, end: 20101206
  3. DESLORATADINE [Suspect]
     Indication: PRODUCT USED FOR UNKNOWN INDICATION
     Dosage: 7 DF, ONCE, PO
     Route: 048
     Dates: start: 20101206, end: 20101206
  4. ACETAMINOPHEN [Suspect]
     Indication: PRODUCT USED FOR UNKNOWN INDICATION
     Dosage: 8000 MG, ONCE, PO
     Route: 048
     Dates: start: 20101206, end: 20101206

REACTIONS (5)
  - SUICIDE ATTEMPT [None]
  - DRUG LEVEL INCREASED [None]
  - SOMNOLENCE [None]
  - BLOOD CREATININE INCREASED [None]
  - INTENTIONAL DRUG MISUSE [None]
